FAERS Safety Report 9412248 (Version 2)
Quarter: 2013Q2

REPORT INFORMATION
  Report Type: Spontaneous
  Country: US (occurrence: None)
  Receive Date: 20130402
  Receipt Date: 20130508
  Transmission Date: 20140414
  Serious: Yes (Hospitalization, Other)
  Sender: FDA-Public Use
  Company Number: ADR-2012-01532

PATIENT
  Sex: Female

DRUGS (2)
  1. LIORESAL INTRATHECAL [Suspect]
     Indication: MUSCLE SPASTICITY
  2. LIORESAL INTRATHECAL [Suspect]
     Indication: CEREBRAL PALSY

REACTIONS (9)
  - Device breakage [None]
  - Device leakage [None]
  - Incorrect dose administered [None]
  - Device damage [None]
  - Hypotonia [None]
  - Diplopia [None]
  - Hypokinesia [None]
  - Drug ineffective [None]
  - Overdose [None]
